FAERS Safety Report 10378155 (Version 2)
Quarter: 2014Q3

REPORT INFORMATION
  Report Type: Spontaneous
  Country: FR (occurrence: None)
  Receive Date: 20140807
  Receipt Date: 20140923
  Transmission Date: 20150326
  Serious: Yes (Other)
  Sender: FDA-Public Use
  Company Number: 2014-20099

PATIENT
  Age: 66 Year
  Sex: Female

DRUGS (4)
  1. OFLO (OFLOXACIN) [Concomitant]
  2. BETADINE OPHTHALMIC (POVIDONE-IODINE) [Concomitant]
  3. CILOXAN (CIPROFLOXACIN HYDROCHLORIDE) [Concomitant]
  4. EYLEA [Suspect]
     Active Substance: AFLIBERCEPT
     Indication: AGE-RELATED MACULAR DEGENERATION
     Route: 031
     Dates: start: 201403, end: 201403

REACTIONS (3)
  - Ageusia [None]
  - Anosmia [None]
  - Eye haemorrhage [None]

NARRATIVE: CASE EVENT DATE: 201406
